FAERS Safety Report 22198139 (Version 1)
Quarter: 2023Q2

REPORT INFORMATION
  Report Type: Spontaneous
  Country: FR (occurrence: FR)
  Receive Date: 20230411
  Receipt Date: 20230411
  Transmission Date: 20230722
  Serious: Yes (Other)
  Sender: FDA-Public Use
  Company Number: None

PATIENT
  Age: 18 Year
  Sex: Female
  Weight: 51 kg

DRUGS (3)
  1. VALGANCICLOVIR HYDROCHLORIDE [Suspect]
     Active Substance: VALGANCICLOVIR HYDROCHLORIDE
     Indication: Transplant
     Dosage: 1/DAY
     Route: 065
     Dates: start: 20230105
  2. ENVARSUS XR [Suspect]
     Active Substance: TACROLIMUS
     Indication: Antiviral prophylaxis
     Dosage: 3 MILLIGRAM DAILY; 3MG/DAY
     Route: 065
     Dates: start: 20230105
  3. MYFORTIC [Suspect]
     Active Substance: MYCOPHENOLATE SODIUM
     Indication: Transplant
     Dosage: NR
     Route: 065
     Dates: start: 20230105

REACTIONS (1)
  - Alopecia [Not Recovered/Not Resolved]

NARRATIVE: CASE EVENT DATE: 20230207
